FAERS Safety Report 21234244 (Version 1)
Quarter: 2022Q3

REPORT INFORMATION
  Report Type: Spontaneous
  Country: US (occurrence: US)
  Receive Date: 20220819
  Receipt Date: 20220819
  Transmission Date: 20221026
  Serious: Yes (Other)
  Sender: FDA-Public Use
  Company Number: US-009507513-2208USA006357

PATIENT
  Sex: Female
  Weight: 73.016 kg

DRUGS (2)
  1. KEYTRUDA [Suspect]
     Active Substance: PEMBROLIZUMAB
     Dosage: 100 MG/4 ML
  2. LENVATINIB MESYLATE [Suspect]
     Active Substance: LENVATINIB MESYLATE
     Indication: Endometrial cancer
     Dosage: 10 MILLIGRAM, 1 DAILY
     Route: 048
     Dates: start: 20220615, end: 20220809

REACTIONS (2)
  - Hepatitis [Not Recovered/Not Resolved]
  - Liver disorder [Not Recovered/Not Resolved]
